FAERS Safety Report 5286145-5 (Version None)
Quarter: 2007Q2

REPORT INFORMATION
  Report Type: 
  Country: None (occurrence: None)
  Receive Date: 20070404
  Receipt Date: 20070322
  Transmission Date: 20071010
  Serious: Yes (Hospitalization)
  Sender: FDA-Public Use
  Company Number: PHHO2006DE11572

PATIENT
  Age: 68 Year
  Sex: Female

DRUGS (2)
  1. GLEEVEC [Suspect]
     Indication: BREAST CANCER METASTATIC
     Dosage: 600 MG, QD
     Route: 048
     Dates: start: 20060629
  2. VINORELBINE [Suspect]
     Indication: BREAST CANCER METASTATIC
     Dosage: 10 MG/M2, QW
     Route: 042
     Dates: start: 20060706

REACTIONS (2)
  - MENTAL DISORDER [None]
  - NAUSEA [None]
